FAERS Safety Report 7769083-5 (Version None)
Quarter: 2011Q3

REPORT INFORMATION
  Report Type: 
  Country: None (occurrence: None)
  Receive Date: 20110922
  Receipt Date: 20100810
  Transmission Date: 20111222
  Serious: No
  Sender: FDA-Public Use
  Company Number: US-ASTRAZENECA-2009UW04329

PATIENT
  Age: 46 Year
  Sex: Female
  Weight: 133.4 kg

DRUGS (30)
  1. LIPITOR [Concomitant]
     Dates: start: 20051223
  2. PRILOSEC OTC [Concomitant]
     Dates: start: 20051223
  3. SEROQUEL [Suspect]
     Route: 048
     Dates: start: 20050829
  4. ATIVAN [Concomitant]
     Dates: start: 20051117
  5. DEPAKOTE [Concomitant]
     Dates: start: 20070927
  6. RISPERDAL [Concomitant]
     Dates: start: 20070927
  7. SEROQUEL [Suspect]
     Route: 048
     Dates: start: 20050829
  8. SEROQUEL [Suspect]
     Route: 048
     Dates: start: 20050829
  9. LEXAPRO [Concomitant]
     Dates: start: 20050829
  10. LAMICTAL [Concomitant]
     Dates: start: 20060530
  11. RITALIN [Concomitant]
     Dates: start: 20070927
  12. XANAX [Concomitant]
     Dates: start: 20070927
  13. RANITIDINE HCL [Concomitant]
     Dates: start: 20070927
  14. LORATADINE [Concomitant]
     Dates: start: 20050829
  15. LISINOPRIL [Concomitant]
     Dates: start: 20051020
  16. SEROQUEL [Suspect]
     Indication: BIPOLAR I DISORDER
     Dosage: 50-100MG
     Route: 048
     Dates: start: 20000101, end: 20060101
  17. SEROQUEL [Suspect]
     Route: 048
     Dates: start: 20070927
  18. WELLBUTRIN XL [Concomitant]
     Dates: start: 20050829
  19. LAMICTAL [Concomitant]
  20. SEROQUEL [Suspect]
     Route: 048
     Dates: start: 20070927
  21. TRAZODONE HCL [Concomitant]
     Dates: start: 20050930
  22. ATIVAN [Concomitant]
     Dosage: 0.5 MG 3/PER DAY, 1MG THREE TIMES A DAY
     Dates: start: 20060530
  23. ZOLOFT [Concomitant]
     Dates: start: 20070927
  24. SEROQUEL [Suspect]
     Indication: ANXIETY
     Dosage: 50-100MG
     Route: 048
     Dates: start: 20000101, end: 20060101
  25. SEROQUEL [Suspect]
     Indication: DEPRESSION
     Dosage: 50-100MG
     Route: 048
     Dates: start: 20000101, end: 20060101
  26. SEROQUEL [Suspect]
     Route: 048
     Dates: start: 20070927
  27. LAMICTAL [Concomitant]
  28. ADDERALL 5 [Concomitant]
     Dates: start: 20070927
  29. LIPITOR [Concomitant]
     Dates: start: 20050829
  30. TOPAMAX [Concomitant]
     Dates: start: 20051229

REACTIONS (5)
  - BLOOD CHOLESTEROL INCREASED [None]
  - TYPE 2 DIABETES MELLITUS [None]
  - BLOOD TRIGLYCERIDES INCREASED [None]
  - OBESITY [None]
  - HYPERLIPIDAEMIA [None]
